FAERS Safety Report 6997192-7 (Version None)
Quarter: 2010Q3

REPORT INFORMATION
  Report Type: 
  Country: None (occurrence: None)
  Receive Date: 20100918
  Receipt Date: 20090921
  Transmission Date: 20110219
  Serious: No
  Sender: FDA-Public Use
  Company Number: US-WYE-H11166409

PATIENT
  Sex: Female

DRUGS (1)
  1. ADVIL PM [Suspect]
     Indication: INSOMNIA
     Dosage: 2 CAPLETS BEFORE SLEEP X 1
     Route: 048
     Dates: start: 20090904, end: 20090904

REACTIONS (1)
  - RESTLESS LEGS SYNDROME [None]
